FAERS Safety Report 18966655 (Version 1)
Quarter: 2021Q1

REPORT INFORMATION
  Report Type: Spontaneous
  Country: US (occurrence: US)
  Receive Date: 20210303
  Receipt Date: 20210303
  Transmission Date: 20210420
  Serious: No
  Sender: FDA-Public Use
  Company Number: US-ENDO PHARMACEUTICALS INC-2020-001970

PATIENT
  Sex: Male
  Weight: 81.63 kg

DRUGS (1)
  1. XIAFLEX [Suspect]
     Active Substance: COLLAGENASE CLOSTRIDIUM HISTOLYTICUM
     Indication: DUPUYTREN^S CONTRACTURE
     Dosage: UNK UNKNOWN, FIRST INJECTION
     Route: 026
     Dates: start: 20200109

REACTIONS (2)
  - Therapeutic product effect decreased [Unknown]
  - Contusion [Unknown]

NARRATIVE: CASE EVENT DATE: 2020
